FAERS Safety Report 6974979-8 (Version None)
Quarter: 2010Q3

REPORT INFORMATION
  Report Type: 
  Country: None (occurrence: None)
  Receive Date: 20100909
  Receipt Date: 20090122
  Transmission Date: 20110219
  Serious: No
  Sender: FDA-Public Use
  Company Number: US-WYE-H07840109

PATIENT
  Sex: Male
  Weight: 86.26 kg

DRUGS (3)
  1. PRISTIQ [Suspect]
     Indication: DEPRESSION
     Dosage: HALF OF A 50 MG TABLET
     Route: 048
     Dates: start: 20090117, end: 20090118
  2. PRISTIQ [Suspect]
     Route: 048
     Dates: start: 20090119, end: 20090120
  3. DICYCLOMINE HYDROCHLORIDE [Concomitant]

REACTIONS (2)
  - DIARRHOEA [None]
  - HYPERHIDROSIS [None]
